FAERS Safety Report 8727768 (Version 2)
Quarter: 2012Q4

REPORT INFORMATION
  Report Type: 
  Country: BR (occurrence: BR)
  Receive Date: 20120816
  Receipt Date: 20121219
  Transmission Date: 20130627
  Serious: Yes (Other)
  Sender: FDA-Public Use
  Company Number: BR-JNJFOC-20120504511

PATIENT
  Sex: Female

DRUGS (2)
  1. QUIXIL [Suspect]
     Indication: PROPHYLAXIS
     Route: 050
  2. UNSPECIFIED INGREDIENT [Suspect]
     Indication: PROPHYLAXIS
     Route: 050

REACTIONS (2)
  - Seroma [Unknown]
  - Off label use [Unknown]
